FAERS Safety Report 4594603-1 (Version None)
Quarter: 2005Q1

REPORT INFORMATION
  Report Type: 
  Country: None (occurrence: None)
  Receive Date: 20050301
  Receipt Date: 20041012
  Transmission Date: 20050727
  Serious: No
  Sender: FDA-Public Use
  Company Number: US-BRISTOL-MYERS SQUIBB COMPANY-12730529

PATIENT
  Age: 95 Year
  Sex: Male
  Weight: 54 kg

DRUGS (5)
  1. ERBITUX [Suspect]
     Indication: SARCOMA
     Dosage: REC'D  4 WEEKLY TREATMENTS, THEN REST PERIOD, THEN 2 MORE TREATMENTS, THER. DTS 01-SEP-11-OCT-04
     Route: 042
     Dates: start: 20040101, end: 20040101
  2. SODIUM CHLORIDE [Concomitant]
     Indication: PREMEDICATION
     Route: 042
  3. BENADRYL [Concomitant]
     Indication: PREMEDICATION
     Route: 042
  4. PERSANTINE [Concomitant]
  5. ALLOPURINOL [Concomitant]

REACTIONS (1)
  - SARCOMA [None]
